FAERS Safety Report 23351339 (Version 1)
Quarter: 2023Q4

REPORT INFORMATION
  Report Type: Spontaneous
  Country: US (occurrence: None)
  Receive Date: 20231229
  Receipt Date: 20231229
  Transmission Date: 20240109
  Serious: Yes (Life-Threatening, Disabling)
  Sender: FDA-Public Use
  Company Number: None

PATIENT
  Age: 61 Year
  Sex: Female
  Weight: 89.55 kg

DRUGS (4)
  1. KEYTRUDA [Suspect]
     Active Substance: PEMBROLIZUMAB
     Indication: Triple negative breast cancer
     Dates: start: 20230406, end: 20231020
  2. PREDNISONE [Concomitant]
     Active Substance: PREDNISONE
  3. OTEZLA [Concomitant]
     Active Substance: APREMILAST
  4. Centrum Women^s [Concomitant]

REACTIONS (5)
  - Rash [None]
  - Rash [None]
  - Arthritis [None]
  - Pustular psoriasis [None]
  - Psoriatic arthropathy [None]

NARRATIVE: CASE EVENT DATE: 20231108
